FAERS Safety Report 5982124-0 (Version None)
Quarter: 2008Q4

REPORT INFORMATION
  Report Type: 
  Country: None (occurrence: None)
  Receive Date: 20081202
  Receipt Date: 20081126
  Transmission Date: 20090506
  Serious: Yes (Death)
  Sender: FDA-Public Use
  Company Number: 2008SP024168

PATIENT
  Age: 69 Year
  Sex: Female

DRUGS (2)
  1. PEG-INTRON [Suspect]
     Indication: HEPATITIS C
     Dosage: 100 MCG;QW;SC
     Route: 058
     Dates: start: 20080302, end: 20081111
  2. REBETOL [Suspect]
     Indication: HEPATITIS C
     Dosage: 600 MCG;QD;PO
     Route: 048
     Dates: start: 20080302, end: 20081114

REACTIONS (2)
  - ANEURYSM [None]
  - SUBARACHNOID HAEMORRHAGE [None]
